FAERS Safety Report 21003662 (Version 1)
Quarter: 2022Q2

REPORT INFORMATION
  Report Type: Spontaneous
  Country: US (occurrence: None)
  Receive Date: 20220623
  Receipt Date: 20220623
  Transmission Date: 20220720
  Serious: Yes (Hospitalization, Other)
  Sender: FDA-Public Use
  Company Number: None

PATIENT
  Age: 60 Year
  Sex: Female
  Weight: 45 kg

DRUGS (1)
  1. CIPROFLOXACIN [Suspect]
     Active Substance: CIPROFLOXACIN
     Indication: Bacterial infection
     Dates: start: 20220510, end: 20220517

REACTIONS (7)
  - Drug ineffective [None]
  - Oropharyngeal pain [None]
  - Nasopharyngitis [None]
  - Dizziness [None]
  - Influenza [None]
  - Palpitations [None]
  - Impaired work ability [None]

NARRATIVE: CASE EVENT DATE: 20220512
